FAERS Safety Report 6770224-7 (Version None)
Quarter: 2010Q2

REPORT INFORMATION
  Report Type: 
  Country: None (occurrence: None)
  Receive Date: 20100520
  Receipt Date: 20090618
  Transmission Date: 20101027
  Serious: Yes (Other)
  Sender: FDA-Public Use
  Company Number: 2008058935

PATIENT
  Age: 56 Year
  Sex: Female
  Weight: 74 kg

DRUGS (9)
  1. PROVERA [Suspect]
     Indication: HORMONE REPLACEMENT THERAPY
     Dosage: ORAL
     Route: 048
     Dates: start: 19950401, end: 19970222
  2. PROVERA [Suspect]
     Indication: MENOPAUSE
     Dosage: ORAL
     Route: 048
     Dates: start: 19950401, end: 19970222
  3. MEDROXYPROGESTERONE ACETATE [Suspect]
     Indication: HORMONE REPLACEMENT THERAPY
     Dosage: ORAL
     Route: 048
     Dates: start: 19950401, end: 19980501
  4. ESTRADERM [Suspect]
     Indication: HORMONE REPLACEMENT THERAPY
     Dates: start: 19950225, end: 19970227
  5. ESTRADERM [Suspect]
     Indication: MENOPAUSE
     Dates: start: 19950225, end: 19970227
  6. CYCRIN [Suspect]
     Indication: HORMONE REPLACEMENT THERAPY
     Dates: start: 19950401, end: 19970222
  7. CYCRIN [Suspect]
     Indication: MENOPAUSE
     Dates: start: 19950401, end: 19970222
  8. PREMPRO [Suspect]
     Indication: HORMONE REPLACEMENT THERAPY
     Dates: start: 19970101, end: 19980101
  9. PREMPRO [Suspect]
     Indication: MENOPAUSE
     Dates: start: 19970101, end: 19980101

REACTIONS (1)
  - BREAST CANCER FEMALE [None]
